FAERS Safety Report 6051925-5 (Version None)
Quarter: 2009Q1

REPORT INFORMATION
  Report Type: 
  Country: None (occurrence: None)
  Receive Date: 20090126
  Receipt Date: 20090114
  Transmission Date: 20090719
  Serious: No
  Sender: FDA-Public Use
  Company Number: BR-ASTRAZENECA-2009UW01351

PATIENT
  Age: 45 Year
  Sex: Male

DRUGS (1)
  1. SELOKEN [Suspect]
     Dosage: 100 MG
     Route: 048

REACTIONS (3)
  - CHEST PAIN [None]
  - INTENTIONAL OVERDOSE [None]
  - SLEEP DISORDER [None]
